FAERS Safety Report 18202085 (Version 1)
Quarter: 2020Q3

REPORT INFORMATION
  Report Type: Spontaneous
  Country: US (occurrence: US)
  Receive Date: 20200827
  Receipt Date: 20200827
  Transmission Date: 20201103
  Serious: No
  Sender: FDA-Public Use
  Company Number: US-PFIZER INC-2020324248

PATIENT
  Age: 31 Year
  Sex: Female

DRUGS (5)
  1. ACETAZOLAMIDE. [Concomitant]
     Active Substance: ACETAZOLAMIDE
     Indication: BLOOD POTASSIUM DECREASED
     Dosage: UNK
  2. FOSPHENYTOIN SODIUM. [Suspect]
     Active Substance: FOSPHENYTOIN SODIUM
     Indication: MYOTONIA
     Dosage: UNK
     Route: 042
  3. MEXILETINE [Concomitant]
     Active Substance: MEXILETINE
     Indication: BLOOD POTASSIUM DECREASED
     Dosage: UNK
  4. POTASSIUM [Concomitant]
     Active Substance: POTASSIUM
     Indication: BLOOD POTASSIUM DECREASED
     Dosage: UNK (40MEQ)
  5. ALBUTEROL [SALBUTAMOL SULFATE] [Concomitant]
     Active Substance: ALBUTEROL SULFATE
     Indication: BLOOD POTASSIUM DECREASED
     Dosage: UNK

REACTIONS (4)
  - Product use in unapproved indication [Unknown]
  - Paraesthesia [Unknown]
  - Tachycardia [Unknown]
  - Off label use [Unknown]
